FAERS Safety Report 8233632-3 (Version None)
Quarter: 2012Q1

REPORT INFORMATION
  Report Type: 
  Country: None (occurrence: None)
  Receive Date: 20120326
  Receipt Date: 20120314
  Transmission Date: 20120608
  Serious: Yes (Hospitalization)
  Sender: FDA-Public Use
  Company Number: US-ELI_LILLY_AND_COMPANY-US201203004536

PATIENT
  Sex: Female

DRUGS (12)
  1. NEXIUM [Concomitant]
     Dosage: 40 MG, UNK
  2. LOVASTATIN [Concomitant]
     Dosage: 40 MG, UNK
  3. ATENOLOL [Concomitant]
     Dosage: 50 MG, UNK
  4. VITAMIN D [Concomitant]
     Dosage: 50000 IU, QOD
  5. CITRACAL + D [Concomitant]
  6. ALPRAZOLAM [Concomitant]
     Dosage: 0.5 MG, UNK
  7. LOVENOX [Concomitant]
  8. FORTEO [Suspect]
     Dosage: 20 UG, QD
  9. FORTEO [Suspect]
     Indication: OSTEOPOROSIS
     Dosage: 20 UG, QD
     Dates: start: 20111101
  10. TRAMADOL HCL [Concomitant]
     Dosage: 50 MG, UNK
  11. VITAMIN B-12 [Concomitant]
     Dosage: 50 MG, QD
  12. BENADRYL [Concomitant]
     Dosage: UNK, BID

REACTIONS (13)
  - INTENTIONAL DRUG MISUSE [None]
  - CHEST PAIN [None]
  - FALL [None]
  - GAIT DISTURBANCE [None]
  - MALAISE [None]
  - MUSCULOSKELETAL DISORDER [None]
  - ARTHRALGIA [None]
  - BACK PAIN [None]
  - LIMB INJURY [None]
  - PAIN IN EXTREMITY [None]
  - MUSCULOSKELETAL PAIN [None]
  - PALPITATIONS [None]
  - PAIN [None]
